FAERS Safety Report 6455262-6 (Version None)
Quarter: 2009Q4

REPORT INFORMATION
  Report Type: 
  Country: None (occurrence: None)
  Receive Date: 20091119
  Receipt Date: 20091109
  Transmission Date: 20100525
  Serious: Yes (Hospitalization)
  Sender: FDA-Public Use
  Company Number: 2009AL007127

PATIENT
  Age: 43 Year
  Sex: Female

DRUGS (2)
  1. CARBAMAZEPINE [Suspect]
  2. ACENOCOUMAROL [Concomitant]

REACTIONS (4)
  - ANTICONVULSANT DRUG LEVEL BELOW THERAPEUTIC [None]
  - COAGULATION TIME SHORTENED [None]
  - DRUG INTERACTION [None]
  - INTERNATIONAL NORMALISED RATIO ABNORMAL [None]
